FAERS Safety Report 9390387 (Version 9)
Quarter: 2014Q2

REPORT INFORMATION
  Report Type: Report from Study
  Country: CA (occurrence: CA)
  Receive Date: 20130709
  Receipt Date: 20140528
  Transmission Date: 20141212
  Serious: Yes (Hospitalization, Other)
  Sender: FDA-Public Use
  Company Number: CA-ROCHE-1235147

PATIENT
  Age: 62 Year
  Sex: Female
  Weight: 119 kg

DRUGS (15)
  1. ACTEMRA [Suspect]
     Indication: RHEUMATOID ARTHRITIS
     Route: 042
     Dates: start: 20130603
  2. VITAMIN E [Concomitant]
  3. AVAPRO [Concomitant]
  4. CYMBALTA [Concomitant]
  5. GABAPENTIN [Concomitant]
  6. FUROSEMIDE [Concomitant]
  7. DOCUSATE SODIUM [Concomitant]
  8. ELAVIL (CANADA) [Concomitant]
  9. SALAZOPYRIN [Concomitant]
  10. ATENOLOL [Concomitant]
  11. LIPITOR [Concomitant]
  12. SYNTHROID [Concomitant]
  13. CYCLOBENZAPRINE [Concomitant]
  14. STATEX (CANADA) [Concomitant]
  15. VOLTAREN [Concomitant]

REACTIONS (8)
  - Back pain [Unknown]
  - Abasia [Not Recovered/Not Resolved]
  - Arthralgia [Not Recovered/Not Resolved]
  - Pain in extremity [Not Recovered/Not Resolved]
  - Diabetes mellitus [Unknown]
  - Foreign body sensation in eyes [Recovered/Resolved]
  - Impaired healing [Not Recovered/Not Resolved]
  - Scar [Unknown]
